FAERS Safety Report 21203521 (Version 2)
Quarter: 2023Q2

REPORT INFORMATION
  Report Type: Report from Study
  Country: JP (occurrence: JP)
  Receive Date: 20220811
  Receipt Date: 20230406
  Transmission Date: 20230721
  Serious: Yes (Death, Life-Threatening, Hospitalization, Other)
  Sender: FDA-Public Use
  Company Number: JP-PFIZER INC-PV202200040941

PATIENT
  Age: 1 Month
  Sex: Female
  Weight: 3.34 kg

DRUGS (22)
  1. SIROLIMUS [Suspect]
     Active Substance: SIROLIMUS
     Indication: Lymphangioma
     Dosage: 0.04 MG,1 D
     Route: 048
     Dates: start: 20220407, end: 20220419
  2. SIROLIMUS [Suspect]
     Active Substance: SIROLIMUS
     Dosage: 0.08 MG,1 D
     Route: 048
     Dates: start: 20220420, end: 20220508
  3. SIROLIMUS [Suspect]
     Active Substance: SIROLIMUS
     Dosage: 0.1 MG,1 D
     Route: 048
     Dates: start: 20220509, end: 20220512
  4. DOPAMINE HYDROCHLORIDE [Concomitant]
     Active Substance: DOPAMINE HYDROCHLORIDE
     Dosage: UNK
     Route: 041
     Dates: start: 20220226, end: 20220513
  5. OCTREOTIDE [Concomitant]
     Active Substance: OCTREOTIDE
     Indication: Lymphangioma
     Dosage: UNK
     Route: 058
     Dates: start: 20220307, end: 20220513
  6. PREDNISOLONE ACETATE [Concomitant]
     Active Substance: PREDNISOLONE ACETATE
     Indication: Lymphangioma
     Dosage: UNK
     Route: 065
     Dates: start: 20220228, end: 20220513
  7. FAMOTIDINE [Concomitant]
     Active Substance: FAMOTIDINE
     Dosage: UNK
     Route: 065
     Dates: start: 20220307, end: 20220506
  8. PHENOBARBITAL [Concomitant]
     Active Substance: PHENOBARBITAL
     Dosage: UNK
     Route: 065
     Dates: start: 20220227, end: 20220513
  9. BISOPROLOL FUMARATE [Concomitant]
     Active Substance: BISOPROLOL FUMARATE
     Dosage: UNK
     Route: 048
     Dates: start: 20220316, end: 20220407
  10. VICCILLIN S [AMPICILLIN SODIUM;CLOXACILLIN SODIUM] [Concomitant]
     Dosage: UNK
     Route: 065
     Dates: start: 20220226, end: 20220512
  11. LEVOTHYROXINE SODIUM [Concomitant]
     Active Substance: LEVOTHYROXINE SODIUM
     Dosage: UNK
     Route: 048
     Dates: start: 20220425, end: 20220512
  12. SULFAMETHOXAZOLE\TRIMETHOPRIM [Concomitant]
     Active Substance: SULFAMETHOXAZOLE\TRIMETHOPRIM
     Dosage: UNK
     Route: 048
     Dates: start: 20220503, end: 20220507
  13. HEPARINOID [Concomitant]
     Dosage: UNK
     Route: 065
     Dates: start: 20220329, end: 20220513
  14. HEPARIN SODIUM [Concomitant]
     Active Substance: HEPARIN SODIUM
     Dosage: UNK
     Route: 065
     Dates: start: 20220225, end: 20220513
  15. FENTANYL [Concomitant]
     Active Substance: FENTANYL
     Dosage: UNK
     Route: 065
     Dates: start: 20220401, end: 20220513
  16. MIDAZOLAM [Concomitant]
     Active Substance: MIDAZOLAM
     Dosage: UNK
     Route: 065
     Dates: start: 20220402, end: 20220421
  17. DOBUTAMINE [Concomitant]
     Active Substance: DOBUTAMINE HYDROCHLORIDE
     Dosage: UNK
     Route: 041
     Dates: start: 20220407, end: 20220411
  18. FUROSEMIDE [Concomitant]
     Active Substance: FUROSEMIDE
     Dosage: UNK
     Route: 065
     Dates: start: 20220410, end: 20220513
  19. CEFMETAZOLE [Concomitant]
     Active Substance: CEFMETAZOLE
     Dosage: UNK
     Route: 065
     Dates: start: 20220413, end: 20220420
  20. CANRENOATE POTASSIUM [Concomitant]
     Active Substance: CANRENOATE POTASSIUM
     Dosage: UNK
     Route: 042
     Dates: start: 20220416, end: 20220418
  21. PITRESSIN [Concomitant]
     Active Substance: VASOPRESSIN
     Dosage: UNK
     Route: 065
     Dates: start: 20220509, end: 20220513
  22. MORPHINE HYDROCHLORIDE [Concomitant]
     Active Substance: MORPHINE HYDROCHLORIDE
     Dosage: UNK
     Route: 065
     Dates: start: 20220503, end: 20220503

REACTIONS (19)
  - Hypoxia [Fatal]
  - Circulatory collapse [Fatal]
  - Respiratory failure [Fatal]
  - Atelectasis [Fatal]
  - Blood pressure decreased [Fatal]
  - Hypertrophic cardiomyopathy [Fatal]
  - Condition aggravated [Fatal]
  - Bradycardia [Fatal]
  - Acidosis [Fatal]
  - Hypogammaglobulinaemia [Fatal]
  - Hypomagnesaemia [Fatal]
  - Gastrointestinal haemorrhage [Fatal]
  - Bacterial infection [Recovering/Resolving]
  - Blood pressure decreased [Recovering/Resolving]
  - Product administered to patient of inappropriate age [Unknown]
  - Oliguria [Recovering/Resolving]
  - Urinary tract infection [Recovering/Resolving]
  - Platelet count decreased [Recovering/Resolving]
  - Supraventricular extrasystoles [Recovering/Resolving]

NARRATIVE: CASE EVENT DATE: 20220408
